FAERS Safety Report 19226558 (Version 1)
Quarter: 2021Q2

REPORT INFORMATION
  Report Type: Spontaneous
  Country: US (occurrence: US)
  Receive Date: 20210505
  Receipt Date: 20210505
  Transmission Date: 20210717
  Serious: No
  Sender: FDA-Public Use
  Company Number: US-ROCHE-2570150

PATIENT
  Age: 80 Year
  Sex: Male

DRUGS (2)
  1. ESBRIET [Suspect]
     Active Substance: PIRFENIDONE
     Indication: IDIOPATHIC PULMONARY FIBROSIS
     Dosage: 801 MG 3 TIMES A DAY, ONGOING: YES
     Route: 048
     Dates: start: 201911
  2. ESBRIET [Suspect]
     Active Substance: PIRFENIDONE
     Indication: IDIOPATHIC PULMONARY FIBROSIS
     Dosage: THREE PILLS, THREE TIMES PER DAY, 267MG PILLS ;ONGOING: YES
     Route: 048
     Dates: start: 201910

REACTIONS (4)
  - Nausea [Recovering/Resolving]
  - Medication error [Unknown]
  - Insomnia [Not Recovered/Not Resolved]
  - Abdominal discomfort [Unknown]

NARRATIVE: CASE EVENT DATE: 202002
